FAERS Safety Report 19965069 (Version 1)
Quarter: 2021Q4

REPORT INFORMATION
  Report Type: Spontaneous
  Country: CN (occurrence: CN)
  Receive Date: 20211018
  Receipt Date: 20211018
  Transmission Date: 20220303
  Serious: Yes (Hospitalization)
  Sender: FDA-Public Use
  Company Number: CN-NOVARTISPH-NVSC2021CN236454

PATIENT
  Age: 71 Year
  Sex: Female

DRUGS (2)
  1. CARBAMAZEPINE [Suspect]
     Active Substance: CARBAMAZEPINE
     Indication: Neuritis
     Dosage: 0.1 G, TID
     Route: 065
     Dates: start: 20200605
  2. METHYLCOBALAMIN [Concomitant]
     Active Substance: METHYLCOBALAMIN
     Indication: Neuritis
     Dosage: 0.5 MG, TID
     Route: 065
     Dates: start: 20200605

REACTIONS (1)
  - Conjunctivitis allergic [Recovering/Resolving]
